FAERS Safety Report 7422330-1 (Version None)
Quarter: 2011Q2

REPORT INFORMATION
  Report Type: 
  Country: None (occurrence: None)
  Receive Date: 20110419
  Receipt Date: 20110408
  Transmission Date: 20111010
  Serious: No
  Sender: FDA-Public Use
  Company Number: US-BIOGENIDEC-2010BI024978

PATIENT
  Age: 49 Year
  Sex: Female

DRUGS (1)
  1. TYSABRI [Suspect]
     Indication: MULTIPLE SCLEROSIS
     Route: 042
     Dates: start: 20100318, end: 20110201

REACTIONS (22)
  - VISION BLURRED [None]
  - DYSURIA [None]
  - IODINE ALLERGY [None]
  - PAIN IN EXTREMITY [None]
  - OPTIC NEURITIS [None]
  - FATIGUE [None]
  - DIZZINESS [None]
  - VISUAL IMPAIRMENT [None]
  - HAND FRACTURE [None]
  - TEMPERATURE INTOLERANCE [None]
  - MEMORY IMPAIRMENT [None]
  - BACK PAIN [None]
  - HEADACHE [None]
  - ARTHRALGIA [None]
  - POOR VENOUS ACCESS [None]
  - EYE PRURITUS [None]
  - GAIT DISTURBANCE [None]
  - SOMNOLENCE [None]
  - CONSTIPATION [None]
  - FALL [None]
  - ALTERED VISUAL DEPTH PERCEPTION [None]
  - BLOOD PRESSURE DECREASED [None]
